FAERS Safety Report 9008705 (Version 2)
Quarter: 2013Q2

REPORT INFORMATION
  Report Type: Spontaneous
  Country: GB (occurrence: GB)
  Receive Date: 20130111
  Receipt Date: 20130408
  Transmission Date: 20140414
  Serious: Yes (Other)
  Sender: FDA-Public Use
  Company Number: GB-ROCHE-1178494

PATIENT
  Age: 46 Year
  Sex: Female
  Weight: 67.5 kg

DRUGS (4)
  1. ZELBORAF [Suspect]
     Indication: MALIGNANT MELANOMA
     Route: 048
     Dates: start: 20121010
  2. ZELBORAF [Suspect]
     Dosage: DOSE REDUCED (CYCLE 2)
     Route: 065
     Dates: start: 20121107
  3. METOCLOPRAMIDE [Concomitant]
     Indication: NAUSEA
     Route: 048
     Dates: start: 20121010
  4. METOCLOPRAMIDE [Concomitant]
     Indication: VOMITING

REACTIONS (6)
  - Metastases to liver [Unknown]
  - Rash [Unknown]
  - Blood bilirubin increased [Not Recovered/Not Resolved]
  - Diarrhoea [Unknown]
  - Fatigue [Unknown]
  - Liver function test abnormal [Unknown]
